FAERS Safety Report 20852223 (Version 4)
Quarter: 2022Q2

REPORT INFORMATION
  Report Type: Report from Study
  Country: BR (occurrence: BR)
  Receive Date: 20220520
  Receipt Date: 20220624
  Transmission Date: 20220721
  Serious: Yes (Hospitalization, Other)
  Sender: FDA-Public Use
  Company Number: BR-009507513-2111BRA004438

PATIENT
  Age: 72 Year
  Sex: Male
  Weight: 72 kg

DRUGS (22)
  1. PACLITAXEL [Suspect]
     Active Substance: PACLITAXEL
     Indication: Non-small cell lung cancer metastatic
     Dosage: D1, D8, D15
     Route: 042
     Dates: start: 20210112, end: 20210317
  2. PACLITAXEL [Suspect]
     Active Substance: PACLITAXEL
     Dosage: D1, D8, D15
     Route: 042
     Dates: start: 20210324, end: 20210324
  3. PACLITAXEL [Suspect]
     Active Substance: PACLITAXEL
     Dosage: D1, D8, D15
     Route: 042
     Dates: start: 20210331, end: 20210408
  4. CARBOPLATIN [Suspect]
     Active Substance: CARBOPLATIN
     Indication: Non-small cell lung cancer metastatic
     Dosage: AREA UNDER THE CURVE (AUC) OF 6 MG/ML/MIN
     Route: 042
     Dates: start: 20210112, end: 20210203
  5. CARBOPLATIN [Suspect]
     Active Substance: CARBOPLATIN
     Route: 042
     Dates: start: 20210311, end: 20210311
  6. CARBOPLATIN [Suspect]
     Active Substance: CARBOPLATIN
     Route: 042
     Dates: start: 20210331, end: 20210331
  7. PEMBROLIZUMAB [Suspect]
     Active Substance: PEMBROLIZUMAB
     Indication: Non-small cell lung cancer metastatic
     Route: 042
     Dates: start: 20210112, end: 20210203
  8. PEMBROLIZUMAB [Suspect]
     Active Substance: PEMBROLIZUMAB
     Route: 042
     Dates: start: 20210311, end: 20210311
  9. PEMBROLIZUMAB [Suspect]
     Active Substance: PEMBROLIZUMAB
     Route: 042
     Dates: start: 20210331, end: 20210929
  10. PEMBROLIZUMAB [Suspect]
     Active Substance: PEMBROLIZUMAB
     Route: 042
     Dates: start: 20211019
  11. OLAPARIB [Suspect]
     Active Substance: OLAPARIB
     Indication: Non-small cell lung cancer metastatic
     Route: 048
     Dates: start: 20210513, end: 20211019
  12. CAPTOPRIL [Concomitant]
     Active Substance: CAPTOPRIL
     Indication: Hypertension
     Route: 048
     Dates: start: 199009
  13. HYDROCHLOROTHIAZIDE [Concomitant]
     Active Substance: HYDROCHLOROTHIAZIDE
     Indication: Hypertension
     Route: 048
     Dates: start: 199009
  14. BROMAZEPAM [Concomitant]
     Active Substance: BROMAZEPAM
     Indication: Anxiety
     Route: 048
     Dates: start: 200001
  15. TIOTROPIUM BROMIDE [Concomitant]
     Active Substance: TIOTROPIUM BROMIDE
     Indication: Chronic obstructive pulmonary disease
     Route: 055
     Dates: start: 202011
  16. FORMOTEROL FUMARATE [Concomitant]
     Active Substance: FORMOTEROL FUMARATE
     Indication: Chronic obstructive pulmonary disease
     Route: 055
     Dates: start: 202011
  17. AKYNZEO [Concomitant]
     Indication: Chemotherapy side effect prophylaxis
     Dosage: 1 CAPSULE, ONCE
     Route: 048
     Dates: start: 20210311, end: 20210311
  18. AKYNZEO [Concomitant]
     Dosage: 1 CAPSULE, ONCE
     Route: 048
     Dates: start: 20210324, end: 20210324
  19. DEXAMETHASONE [Concomitant]
     Active Substance: DEXAMETHASONE
     Indication: Chemotherapy side effect prophylaxis
     Dosage: 1 MILLIGRAM, ONCE
     Route: 042
     Dates: start: 20210311, end: 20210311
  20. DEXAMETHASONE [Concomitant]
     Active Substance: DEXAMETHASONE
     Dosage: 10 MILLIGRAM, ONCE
     Route: 042
     Dates: start: 20210324, end: 20210324
  21. FOLIC ACID [Concomitant]
     Active Substance: FOLIC ACID
     Indication: Product used for unknown indication
     Dates: start: 20211129
  22. POTASSIUM CHLORIDE [Concomitant]
     Active Substance: POTASSIUM CHLORIDE
     Indication: Hypokalaemia

REACTIONS (1)
  - Myelodysplastic syndrome [Recovered/Resolved]

NARRATIVE: CASE EVENT DATE: 20210324
